FAERS Safety Report 10499996 (Version 1)
Quarter: 2014Q4

REPORT INFORMATION
  Report Type: Spontaneous
  Country: US (occurrence: US)
  Receive Date: 20141006
  Receipt Date: 20141006
  Transmission Date: 20150528
  Serious: No
  Sender: FDA-Public Use
  Company Number: US-AMGEN INC.-USASP2014057714

PATIENT

DRUGS (1)
  1. PROLIA [Suspect]
     Active Substance: DENOSUMAB
     Indication: PRODUCT USED FOR UNKNOWN INDICATION
     Route: 065

REACTIONS (12)
  - Skin disorder [Unknown]
  - Pain [Unknown]
  - Oral mucosal blistering [Unknown]
  - Insomnia [Unknown]
  - Back pain [Unknown]
  - Pain in extremity [Unknown]
  - Rash [Unknown]
  - Tenderness [Unknown]
  - Adverse drug reaction [Unknown]
  - Blister [Unknown]
  - Myalgia [Unknown]
  - Fatigue [Unknown]
